FAERS Safety Report 9842340 (Version 2)
Quarter: 2014Q2

REPORT INFORMATION
  Report Type: Spontaneous
  Country: US (occurrence: US)
  Receive Date: 20140124
  Receipt Date: 20140528
  Transmission Date: 20141212
  Serious: Yes (Life-Threatening, Congenital Anomaly, Other)
  Sender: FDA-Public Use
  Company Number: US-PFIZER INC-2014021135

PATIENT
  Sex: Male

DRUGS (2)
  1. ZOLOFT [Suspect]
     Indication: ANXIETY
     Dosage: UNK
     Route: 064
     Dates: start: 1999, end: 2000
  2. ZOLOFT [Suspect]
     Indication: DEPRESSION

REACTIONS (4)
  - Maternal exposure during pregnancy [Unknown]
  - Talipes [Unknown]
  - Congenital anomaly [Unknown]
  - Pyloric stenosis [Unknown]
